FAERS Safety Report 8215083-0 (Version None)
Quarter: 2012Q1

REPORT INFORMATION
  Report Type: 
  Country: None (occurrence: None)
  Receive Date: 20120316
  Receipt Date: 20120308
  Transmission Date: 20120608
  Serious: Yes (Hospitalization)
  Sender: FDA-Public Use
  Company Number: PHHY2012US020755

PATIENT
  Age: 58 Year
  Sex: Female

DRUGS (4)
  1. SERTRALINE HYDROCHLORIDE [Suspect]
     Indication: DEPRESSION
     Dosage: 50 MG, DAILY
  2. ZIPRASIDONE HYDROCHLORIDE [Suspect]
     Dosage: 40 MG, BID
  3. ZIPRASIDONE HYDROCHLORIDE [Suspect]
     Indication: DEPRESSION
     Dosage: 40 MG, BID
  4. ZIPRASIDONE HYDROCHLORIDE [Suspect]
     Dosage: 60 MG, BID

REACTIONS (7)
  - DYSKINESIA [None]
  - RABBIT SYNDROME [None]
  - BRADYKINESIA [None]
  - PARKINSONISM [None]
  - MASKED FACIES [None]
  - GAIT DISTURBANCE [None]
  - TREMOR [None]
